APPROVED DRUG PRODUCT: TOBREX
Active Ingredient: TOBRAMYCIN
Strength: 0.3%
Dosage Form/Route: OINTMENT;OPHTHALMIC
Application: N050555 | Product #001
Applicant: NOVARTIS PHARMACEUTICALS CORP
Approved: Approved Prior to Jan 1, 1982 | RLD: Yes | RS: Yes | Type: RX